FAERS Safety Report 6184226-5 (Version None)
Quarter: 2009Q2

REPORT INFORMATION
  Report Type: 
  Country: None (occurrence: None)
  Receive Date: 20090508
  Receipt Date: 20090428
  Transmission Date: 20091009
  Serious: Yes (Other)
  Sender: FDA-Public Use
  Company Number: PHHY2009BR16597

PATIENT
  Age: 53 Year
  Sex: Male

DRUGS (5)
  1. EXFORGE [Suspect]
     Indication: HYPERTENSION
     Dosage: 160/5 MG 1 TAB/DAY
     Route: 048
  2. EXFORGE [Suspect]
     Dosage: 320/5 MG 1 TAB/DAY
     Route: 048
  3. CATAFLAM [Suspect]
  4. CHLORTHALIDONE [Suspect]
     Indication: HYPERTENSION
     Dosage: 50 MG 1 TAB/DAY
     Route: 048
  5. RANITIDINE [Suspect]

REACTIONS (2)
  - BLOOD PRESSURE FLUCTUATION [None]
  - DRUG INTERACTION [None]
